FAERS Safety Report 24108334 (Version 1)
Quarter: 2024Q3

REPORT INFORMATION
  Report Type: Spontaneous
  Country: ES (occurrence: ES)
  Receive Date: 20240718
  Receipt Date: 20240718
  Transmission Date: 20241017
  Serious: Yes (Other)
  Sender: CELLTRION
  Company Number: ES-CELLTRION INC.-2024ES017085

PATIENT

DRUGS (1)
  1. INFLIXIMAB [Suspect]
     Active Substance: INFLIXIMAB
     Indication: Psoriatic arthropathy
     Dosage: 5 MG/KG/8 WEEKS
     Route: 065

REACTIONS (3)
  - Invasive ductal breast carcinoma [Unknown]
  - Psoriasis [Recovering/Resolving]
  - Drug ineffective [Unknown]
